FAERS Safety Report 26217131 (Version 1)
Quarter: 2025Q4

REPORT INFORMATION
  Report Type: Spontaneous
  Country: US (occurrence: US)
  Receive Date: 20251231
  Receipt Date: 20251231
  Transmission Date: 20260118
  Serious: Yes (Other)
  Sender: TEVA
  Company Number: US-TEVA-VS-3406076

PATIENT
  Age: 50 Year
  Sex: Male

DRUGS (4)
  1. PREDNISONE [Suspect]
     Active Substance: PREDNISONE
     Indication: Pulmonary sarcoidosis
     Route: 065
  2. PREDNISONE [Suspect]
     Active Substance: PREDNISONE
     Indication: Pulmonary sarcoidosis
     Route: 065
  3. METHOTREXATE [Suspect]
     Active Substance: METHOTREXATE
     Indication: Pulmonary sarcoidosis
     Route: 065
  4. HYDROXYCHLOROQUINE [Suspect]
     Active Substance: HYDROXYCHLOROQUINE
     Indication: Pulmonary sarcoidosis
     Route: 065

REACTIONS (4)
  - Diabetes mellitus [Unknown]
  - Mood altered [Unknown]
  - Affective disorder [Unknown]
  - Drug intolerance [Unknown]
